FAERS Safety Report 7432000-1 (Version None)
Quarter: 2011Q2

REPORT INFORMATION
  Report Type: 
  Country: None (occurrence: None)
  Receive Date: 20110419
  Receipt Date: 20110419
  Transmission Date: 20111010
  Serious: Yes (Other)
  Sender: FDA-Public Use
  Company Number: None

PATIENT
  Age: 44 Year
  Sex: Male

DRUGS (1)
  1. OPTIRAY 300 [Suspect]

REACTIONS (3)
  - FOREIGN BODY [None]
  - PRODUCT QUALITY ISSUE [None]
  - PRODUCT DEPOSIT [None]
